FAERS Safety Report 4860977-7 (Version None)
Quarter: 2005Q4

REPORT INFORMATION
  Report Type: 
  Country: None (occurrence: None)
  Receive Date: 20051220
  Receipt Date: 20050429
  Transmission Date: 20060501
  Serious: Yes (Other)
  Sender: FDA-Public Use
  Company Number: FR-BRISTOL-MYERS SQUIBB COMPANY-12951364

PATIENT

DRUGS (1)
  1. REYATAZ [Suspect]
     Route: 048

REACTIONS (1)
  - TRANSAMINASES INCREASED [None]
